FAERS Safety Report 6655466-3 (Version None)
Quarter: 2010Q1

REPORT INFORMATION
  Report Type: 
  Country: None (occurrence: None)
  Receive Date: 20100329
  Receipt Date: 20100317
  Transmission Date: 20100710
  Serious: Yes (Other)
  Sender: FDA-Public Use
  Company Number: US-PFIZER INC-2010036351

PATIENT
  Sex: Female
  Weight: 47.6 kg

DRUGS (7)
  1. LIPITOR [Suspect]
     Indication: BLOOD CHOLESTEROL INCREASED
     Dosage: 5 MG, UNK
  2. PROVERA [Suspect]
     Dosage: UNK
     Route: 048
  3. PREMARIN [Suspect]
     Dosage: UNK
     Route: 048
  4. PREMARIN [Suspect]
     Indication: UTERINE PROLAPSE
     Dosage: 0.5 G, WEEKLY
     Route: 067
     Dates: start: 20100101
  5. OSCAL 500-D [Concomitant]
     Dosage: UNK
  6. SYNTHROID [Concomitant]
     Indication: THYROID DISORDER
     Dosage: 25 UG, UNK
  7. TETRACYCLINE [Concomitant]
     Indication: RASH
     Dosage: 2 HOURS AFTER EATING AT BEDTIME DAILY

REACTIONS (7)
  - ACNE [None]
  - HYPERTENSION [None]
  - POST PROCEDURAL HAEMORRHAGE [None]
  - PROTEIN TOTAL DECREASED [None]
  - ROTATOR CUFF REPAIR [None]
  - UPPER LIMB FRACTURE [None]
  - UTERINE PROLAPSE [None]
